FAERS Safety Report 24919727 (Version 1)
Quarter: 2025Q1

REPORT INFORMATION
  Report Type: Report from Study
  Country: JP (occurrence: JP)
  Receive Date: 20250204
  Receipt Date: 20250204
  Transmission Date: 20250408
  Serious: No
  Sender: EXELIXIS
  Company Number: JP-TAKEDA-2023TJP016872

PATIENT
  Age: 54 Year
  Sex: Male
  Weight: 86.7 kg

DRUGS (3)
  1. CABOMETYX [Suspect]
     Active Substance: CABOZANTINIB S-MALATE
     Indication: Hepatocellular carcinoma
     Route: 065
     Dates: start: 20230110, end: 20230201
  2. CABOMETYX [Suspect]
     Active Substance: CABOZANTINIB S-MALATE
     Route: 065
     Dates: start: 20230215, end: 20230427
  3. WARFARIN [Concomitant]
     Active Substance: WARFARIN
     Indication: Hepatocellular carcinoma
     Route: 065
     Dates: start: 20220117

REACTIONS (1)
  - International normalised ratio increased [Recovered/Resolved]

NARRATIVE: CASE EVENT DATE: 20230201
